FAERS Safety Report 13251829 (Version 2)
Quarter: 2017Q1

REPORT INFORMATION
  Report Type: Spontaneous
  Country: PR (occurrence: PR)
  Receive Date: 20170220
  Receipt Date: 20170315
  Transmission Date: 20170428
  Serious: No
  Sender: FDA-Public Use
  Company Number: PR-PFIZER INC-2017072722

PATIENT
  Age: 77 Year
  Sex: Female
  Weight: 67.13 kg

DRUGS (3)
  1. IBRANCE [Suspect]
     Active Substance: PALBOCICLIB
     Dosage: 100 MG, ALTERNATE DAY
  2. FASLODEX [Concomitant]
     Active Substance: FULVESTRANT
     Indication: OSTEOGENESIS IMPERFECTA
     Dosage: 500 MG, SHOT, EVERY 28 DAYS
  3. IBRANCE [Suspect]
     Active Substance: PALBOCICLIB
     Indication: BREAST CANCER METASTATIC
     Dosage: 100 MG, DAILY
     Dates: start: 201609

REACTIONS (1)
  - Full blood count decreased [Recovering/Resolving]

NARRATIVE: CASE EVENT DATE: 2016
